FAERS Safety Report 17824029 (Version 1)
Quarter: 2020Q2

REPORT INFORMATION
  Report Type: Spontaneous
  Country: US (occurrence: US)
  Receive Date: 20200526
  Receipt Date: 20200526
  Transmission Date: 20200714
  Serious: No
  Sender: FDA-Public Use
  Company Number: None

PATIENT
  Age: 27 Year
  Sex: Female
  Weight: 57.15 kg

DRUGS (5)
  1. SLYND [Suspect]
     Active Substance: DROSPIRENONE
     Indication: DYSMENORRHOEA
     Route: 048
     Dates: start: 20191201, end: 20200521
  2. RENEW LIFE PROBIOTIC [Concomitant]
  3. SLYND [Suspect]
     Active Substance: DROSPIRENONE
     Indication: MENORRHAGIA
     Route: 048
     Dates: start: 20191201, end: 20200521
  4. IBUPROFEN. [Concomitant]
     Active Substance: IBUPROFEN
  5. NAPROXEN. [Concomitant]
     Active Substance: NAPROXEN

REACTIONS (13)
  - Depression [None]
  - Fatigue [None]
  - Breast pain [None]
  - Vulvovaginal dryness [None]
  - Metrorrhagia [None]
  - Abdominal distension [None]
  - Loss of libido [None]
  - Dry eye [None]
  - Acne [None]
  - Hot flush [None]
  - Skin hyperpigmentation [None]
  - Breast tenderness [None]
  - Nausea [None]

NARRATIVE: CASE EVENT DATE: 20191201
